FAERS Safety Report 5143509-8 (Version None)
Quarter: 2006Q4

REPORT INFORMATION
  Report Type: 
  Country: None (occurrence: None)
  Receive Date: 20061103
  Receipt Date: 20061027
  Transmission Date: 20070319
  Serious: Yes (Other)
  Sender: FDA-Public Use
  Company Number: NO-GLAXOSMITHKLINE-B0445146A

PATIENT
  Age: 40 Year
  Sex: Male

DRUGS (1)
  1. MALARONE [Suspect]
     Route: 048
     Dates: end: 20060601

REACTIONS (6)
  - DRUG ERUPTION [None]
  - KOEBNER PHENOMENON [None]
  - LEUKOPLAKIA ORAL [None]
  - LICHEN PLANUS [None]
  - RASH PAPULAR [None]
  - RASH PRURITIC [None]
